FAERS Safety Report 9420149 (Version 1)
Quarter: 2013Q3

REPORT INFORMATION
  Report Type: Spontaneous
  Country: CH (occurrence: CH)
  Receive Date: 20130725
  Receipt Date: 20130725
  Transmission Date: 20140515
  Serious: Yes (Other)
  Sender: FDA-Public Use
  Company Number: CH-PFIZER INC-2013214113

PATIENT
  Sex: Female
  Weight: 38 kg

DRUGS (1)
  1. EFEXOR ER [Suspect]
     Dosage: UNK

REACTIONS (2)
  - Gastric disorder [Recovered/Resolved]
  - Wrong technique in drug usage process [Unknown]
